FAERS Safety Report 23825702 (Version 1)
Quarter: 2024Q2

REPORT INFORMATION
  Report Type: Spontaneous
  Country: US (occurrence: US)
  Receive Date: 20240507
  Receipt Date: 20240507
  Transmission Date: 20240716
  Serious: Yes (Other)
  Sender: FDA-Public Use
  Company Number: US-PFIZER INC-202400100787

PATIENT
  Age: 54 Year
  Sex: Female
  Weight: 95.25 kg

DRUGS (1)
  1. VYNDAMAX [Suspect]
     Active Substance: TAFAMIDIS
     Indication: Amyloidosis
     Dosage: 61 MG, 1X/DAY
     Dates: start: 20230516, end: 20240319

REACTIONS (7)
  - Neck surgery [Unknown]
  - Dysphagia [Not Recovered/Not Resolved]
  - Abdominal pain upper [Recovered/Resolved]
  - Odynophagia [Recovering/Resolving]
  - Diarrhoea [Recovered/Resolved]
  - Faeces discoloured [Recovered/Resolved]
  - Swelling [Unknown]

NARRATIVE: CASE EVENT DATE: 20230601
